FAERS Safety Report 6667854-X (Version None)
Quarter: 2010Q2

REPORT INFORMATION
  Report Type: 
  Country: None (occurrence: None)
  Receive Date: 20100405
  Receipt Date: 20100324
  Transmission Date: 20101027
  Serious: Yes (Hospitalization, Other)
  Sender: FDA-Public Use
  Company Number: JP-PFIZER INC-2010033106

PATIENT
  Age: 70 Year
  Sex: Male
  Weight: 86.6 kg

DRUGS (10)
  1. GABAPEN [Suspect]
     Dosage: 800 MG, 3X/DAY
     Dates: start: 20091001
  2. ASPIRIN [Concomitant]
     Dosage: UNK
     Route: 048
  3. PLETAL [Concomitant]
     Dosage: UNK
     Route: 048
  4. VALSARTAN [Concomitant]
     Dosage: UNK
     Route: 048
     Dates: start: 20061031
  5. NORVASC [Concomitant]
     Dosage: UNK
     Route: 048
     Dates: start: 20061226
  6. KINEDAK [Concomitant]
     Dosage: UNK
     Route: 048
     Dates: start: 20080101
  7. LIVALO [Concomitant]
     Dosage: UNK
     Route: 048
     Dates: start: 20070126
  8. LAMISIL [Concomitant]
     Dosage: UNK
     Route: 048
     Dates: start: 20091027
  9. DEPAS [Concomitant]
     Dosage: UNK
     Route: 048
  10. ALOSENN [Concomitant]
     Dosage: UNK
     Route: 048
     Dates: start: 20080207

REACTIONS (6)
  - ALTERED STATE OF CONSCIOUSNESS [None]
  - BLOOD PRESSURE INCREASED [None]
  - DISORIENTATION [None]
  - DYSLALIA [None]
  - INTERVERTEBRAL DISC PROTRUSION [None]
  - NEUROPATHY PERIPHERAL [None]
